FAERS Safety Report 9943797 (Version 7)
Quarter: 2014Q3

REPORT INFORMATION
  Report Type: Report from Study
  Country: US (occurrence: US)
  Receive Date: 20140303
  Receipt Date: 20140808
  Transmission Date: 20150326
  Serious: Yes (Hospitalization, Other)
  Sender: FDA-Public Use
  Company Number: US-ACTELION-A-NJ2013-86890

PATIENT
  Age: 71 Year
  Sex: Female

DRUGS (21)
  1. COUMADIN [Concomitant]
     Active Substance: WARFARIN SODIUM
     Dosage: 5 MG, QD
  2. PRILOSEC [Concomitant]
     Active Substance: OMEPRAZOLE MAGNESIUM
     Dosage: 40 MG, QD
  3. ALLOPURINOL. [Concomitant]
     Active Substance: ALLOPURINOL
     Dosage: 100 MG, QD
  4. TRACLEER [Suspect]
     Active Substance: BOSENTAN\BOSENTAN MONOHYDRATE
     Dosage: 125 MG, BID
     Route: 048
     Dates: start: 20131128
  5. IRON [Concomitant]
     Active Substance: IRON
     Dosage: 25 MG 3XW
  6. MIRALAX [Concomitant]
     Active Substance: POLYETHYLENE GLYCOL 3350
     Dosage: 3 X W
  7. DUONEB [Concomitant]
     Active Substance: ALBUTEROL SULFATE\IPRATROPIUM BROMIDE
     Dosage: 3 DAYS/WK
  8. OXYGEN. [Concomitant]
     Active Substance: OXYGEN
  9. COREG [Concomitant]
     Active Substance: CARVEDILOL
     Dosage: 3.125 MG, BID
  10. COLACE [Concomitant]
     Active Substance: DOCUSATE SODIUM
     Dosage: 100 MG, BID
     Dates: start: 20131118
  11. SIMVASTATIN. [Concomitant]
     Active Substance: SIMVASTATIN
     Dosage: 40 MG QD
  12. HYDROCODONE [Concomitant]
     Active Substance: HYDROCODONE
     Dosage: 10/325 PRN
  13. TRACLEER [Suspect]
     Active Substance: BOSENTAN\BOSENTAN MONOHYDRATE
     Indication: PULMONARY ARTERIAL HYPERTENSION
     Dosage: 125 MG BID
     Route: 048
     Dates: start: 20080402, end: 20131126
  14. JANUVIA [Concomitant]
     Active Substance: SITAGLIPTIN PHOSPHATE
     Dosage: 50 MG, QD
  15. BUMEX [Concomitant]
     Active Substance: BUMETANIDE
     Dosage: 2 MG, BID
  16. MULTIVITAMIN [Concomitant]
     Active Substance: VITAMINS
     Dosage: 1 TAB QD
     Dates: start: 2001
  17. POTASSIUM [Concomitant]
     Active Substance: POTASSIUM
     Dosage: 40 MEQ, BID
     Dates: start: 20131128
  18. ACCOLATE [Concomitant]
     Active Substance: ZAFIRLUKAST
     Dosage: 10 MG QD
  19. VITAMIN D3 [Concomitant]
     Active Substance: CHOLECALCIFEROL
     Dosage: 20000 IU, UNK
     Dates: start: 2010
  20. TRAMADOL [Concomitant]
     Active Substance: TRAMADOL
     Dosage: 50 MG PRN
  21. XARELTO [Concomitant]
     Active Substance: RIVAROXABAN

REACTIONS (25)
  - Dry mouth [Unknown]
  - Presyncope [Unknown]
  - Exercise tolerance decreased [Recovered/Resolved]
  - Pulmonary function test decreased [Unknown]
  - Dyspnoea [Recovered/Resolved]
  - Sleep apnoea syndrome [Unknown]
  - Oedema [Unknown]
  - Dizziness [Unknown]
  - Heart valve replacement [Recovered/Resolved]
  - Mitral valve incompetence [Recovered/Resolved]
  - Choking sensation [Unknown]
  - Pain [Unknown]
  - Gastritis [Recovering/Resolving]
  - Ligament sprain [Unknown]
  - Aortic valve incompetence [Recovered/Resolved]
  - Transient ischaemic attack [Unknown]
  - Asthenia [Unknown]
  - Migraine with aura [Unknown]
  - Fatigue [Recovered/Resolved]
  - Wheelchair user [Unknown]
  - Cardiac failure [Recovered/Resolved]
  - Cough [Unknown]
  - Nocturnal dyspnoea [Unknown]
  - Cardiac operation [Recovered/Resolved]
  - Insomnia [Unknown]

NARRATIVE: CASE EVENT DATE: 2013
